FAERS Safety Report 5744168-3 (Version None)
Quarter: 2008Q2

REPORT INFORMATION
  Report Type: 
  Country: None (occurrence: None)
  Receive Date: 20080516
  Receipt Date: 20080501
  Transmission Date: 20081010
  Serious: Yes (Hospitalization)
  Sender: FDA-Public Use
  Company Number: 2008AL003166

PATIENT
  Age: 80 Year
  Sex: Female

DRUGS (5)
  1. DIGOXIN [Suspect]
     Indication: HEART RATE IRREGULAR
     Dosage: 0.25 MG DAILY PO
     Route: 048
  2. LASIX [Concomitant]
  3. BENECOR [Concomitant]
  4. FOSAMAX [Concomitant]
  5. VELERO [Concomitant]

REACTIONS (3)
  - CONVULSION [None]
  - DIZZINESS [None]
  - HEART RATE IRREGULAR [None]
